FAERS Safety Report 5742681-6 (Version None)
Quarter: 2008Q2

REPORT INFORMATION
  Report Type: 
  Country: None (occurrence: None)
  Receive Date: 20080519
  Receipt Date: 20080508
  Transmission Date: 20081010
  Serious: Yes (Death)
  Sender: FDA-Public Use
  Company Number: A0699230A

PATIENT
  Age: 13 Year
  Sex: Male
  Weight: 81.8 kg

DRUGS (2)
  1. SEREVENT [Suspect]
     Indication: ASTHMA
     Route: 055
     Dates: end: 20020920
  2. ALBUTEROL [Concomitant]
     Route: 055

REACTIONS (4)
  - ANOXIC ENCEPHALOPATHY [None]
  - ASTHMA [None]
  - LUNG HYPERINFLATION [None]
  - RESPIRATORY ARREST [None]
